FAERS Safety Report 9501720 (Version 1)
Quarter: 2013Q3

REPORT INFORMATION
  Report Type: Spontaneous
  Country: US (occurrence: US)
  Receive Date: 20130905
  Receipt Date: 20130905
  Transmission Date: 20140515
  Serious: No
  Sender: FDA-Public Use
  Company Number: US-ASTRAZENECA-2012SE88169

PATIENT
  Sex: 0

DRUGS (1)
  1. SYMBICORT [Suspect]
     Indication: ASTHMA
     Dosage: UNKNOWN
     Route: 055

REACTIONS (4)
  - Affective disorder [Unknown]
  - Bone density abnormal [Unknown]
  - Depression [Unknown]
  - Adrenal suppression [Unknown]
